FAERS Safety Report 6042054-5 (Version None)
Quarter: 2009Q1

REPORT INFORMATION
  Report Type: 
  Country: None (occurrence: None)
  Receive Date: 20090116
  Receipt Date: 20090113
  Transmission Date: 20090719
  Serious: Yes (Other)
  Sender: FDA-Public Use
  Company Number: GB-JNJFOC-20090102142

PATIENT
  Sex: Female

DRUGS (1)
  1. DAKTARIN GOLD [Suspect]
     Indication: TINEA PEDIS
     Route: 061

REACTIONS (2)
  - APPLICATION SITE REACTION [None]
  - APPLICATION SITE VESICLES [None]
